FAERS Safety Report 25443767 (Version 1)
Quarter: 2025Q2

REPORT INFORMATION
  Report Type: Report from Study
  Country: US (occurrence: US)
  Receive Date: 20250617
  Receipt Date: 20250617
  Transmission Date: 20250716
  Serious: Yes (Other)
  Sender: ACADIA PHARMACEUTICALS
  Company Number: US-ACADIA PHARMACEUTICALS INC.-ACA-2025-PIM-007044

PATIENT
  Age: 78 Year
  Sex: Male

DRUGS (19)
  1. NUPLAZID [Suspect]
     Active Substance: PIMAVANSERIN TARTRATE
     Indication: Hallucination
     Dosage: 34 MILLIGRAM, QD
     Route: 048
     Dates: start: 20250319, end: 20250326
  2. ACETAMINOPHEN [Concomitant]
     Active Substance: ACETAMINOPHEN
  3. ATORVASTATIN [Concomitant]
     Active Substance: ATORVASTATIN
  4. BUPROPION [Concomitant]
     Active Substance: BUPROPION
  5. CARBIDOPA AND LEVODOPA [Concomitant]
     Active Substance: CARBIDOPA\LEVODOPA
  6. CARVEDILOL [Concomitant]
     Active Substance: CARVEDILOL
  7. DICYCLOMINE [Concomitant]
     Active Substance: DICYCLOMINE HYDROCHLORIDE
  8. DONEPEZIL [Concomitant]
     Active Substance: DONEPEZIL
  9. ELIQUIS [Concomitant]
     Active Substance: APIXABAN
  10. ENTACAPONE [Concomitant]
     Active Substance: ENTACAPONE
  11. FERROUS GLUCONATE [Concomitant]
     Active Substance: FERROUS GLUCONATE
  12. FUROSEMIDE [Concomitant]
     Active Substance: FUROSEMIDE
  13. HALOPERIDOL [Concomitant]
     Active Substance: HALOPERIDOL
  14. ACETAMINOPHEN\HYDROCODONE [Concomitant]
     Active Substance: ACETAMINOPHEN\HYDROCODONE
  15. LEVOTHYROXINE [Concomitant]
     Active Substance: LEVOTHYROXINE
  16. ONDANSETRON [Concomitant]
     Active Substance: ONDANSETRON
  17. QUETIAPINE [Concomitant]
     Active Substance: QUETIAPINE
  18. TRAMADOL [Concomitant]
     Active Substance: TRAMADOL
  19. VITAMIN D2 [Concomitant]
     Active Substance: ERGOCALCIFEROL

REACTIONS (2)
  - Hallucination [Recovered/Resolved]
  - Confusional state [Recovered/Resolved]

NARRATIVE: CASE EVENT DATE: 20250322
